FAERS Safety Report 14580680 (Version 4)
Quarter: 2018Q3

REPORT INFORMATION
  Report Type: Report from Study
  Country: FR (occurrence: FR)
  Receive Date: 20180228
  Receipt Date: 20180731
  Transmission Date: 20181010
  Serious: Yes (Death, Hospitalization)
  Sender: FDA-Public Use
  Company Number: FR-TEVA-2018-FR-860360

PATIENT
  Age: 41 Year
  Sex: Male
  Weight: 55 kg

DRUGS (26)
  1. ELVORINE [Suspect]
     Active Substance: LEUCOVORIN CALCIUM
     Indication: PRODUCT USED FOR UNKNOWN INDICATION
     Dosage: UNK
     Route: 065
     Dates: start: 20160914
  2. METEOXANE /08328901/ [Concomitant]
     Active Substance: DIMETHICONE\PHLOROGLUCINOL
     Indication: ABDOMINAL DISTENSION
     Dosage: UNK
     Route: 048
     Dates: start: 20160729, end: 2016
  3. SOLU?MEDROL [Concomitant]
     Active Substance: METHYLPREDNISOLONE SODIUM SUCCINATE
     Indication: ABDOMINAL PAIN
     Dosage: UNK
     Route: 048
     Dates: start: 20161004, end: 20161005
  4. SOLU?MEDROL [Concomitant]
     Active Substance: METHYLPREDNISOLONE SODIUM SUCCINATE
     Dosage: UNK
     Route: 048
     Dates: start: 20160920, end: 20160920
  5. MORPHIN [Concomitant]
     Active Substance: MORPHINE
     Indication: ABDOMINAL PAIN
     Dosage: UNK
     Route: 042
     Dates: start: 20161004, end: 20161007
  6. OXYNORM [Concomitant]
     Active Substance: OXYCODONE HYDROCHLORIDE
     Indication: ABDOMINAL PAIN
     Dosage: UNK
     Route: 048
     Dates: start: 201510
  7. OXALIPLATIN. [Suspect]
     Active Substance: OXALIPLATIN
     Indication: PRODUCT USED FOR UNKNOWN INDICATION
     Dosage: 75 MG/M2 EVERY14 DAYS
     Route: 065
     Dates: start: 20151105, end: 20160218
  8. IRINOTECAN HYDROCHLORIDE. [Suspect]
     Active Substance: IRINOTECAN HYDROCHLORIDE
     Indication: PRODUCT USED FOR UNKNOWN INDICATION
     Dosage: 180 MG/M2, SINGLE
     Route: 065
     Dates: start: 20160914, end: 20160914
  9. SUTENT [Suspect]
     Active Substance: SUNITINIB MALATE
     Dosage: 12.5 MILLIGRAM DAILY; 12.5 MG, DAILY
     Dates: start: 2015, end: 2015
  10. SOMATULINE [Suspect]
     Active Substance: LANREOTIDE ACETATE
     Indication: PRODUCT USED FOR UNKNOWN INDICATION
     Dosage: UNK
     Route: 065
     Dates: start: 20160920, end: 20160920
  11. SOMATULINE [Suspect]
     Active Substance: LANREOTIDE ACETATE
     Dosage: 120 MG, CYCLIC, EVERY 28 DAYS
     Dates: start: 20160810, end: 20160907
  12. INIPOMP [Concomitant]
     Active Substance: PANTOPRAZOLE SODIUM
     Indication: REFLUX GASTRITIS
     Dosage: UNK
     Route: 048
     Dates: start: 20160616
  13. DEBRIDAT [Concomitant]
     Active Substance: TRIMEBUTINE MALEATE
     Indication: ABDOMINAL DISTENSION
     Dosage: UNK
     Route: 048
     Dates: start: 20160902, end: 2016
  14. TARDYFERON [Concomitant]
     Active Substance: FERROUS SULFATE
     Indication: IRON DEFICIENCY
     Dates: start: 20160630, end: 20160729
  15. GEMCITABINE HYDROCHLORIDE. [Suspect]
     Active Substance: GEMCITABINE HYDROCHLORIDE
     Indication: PRODUCT USED FOR UNKNOWN INDICATION
     Dosage: 500 MG/M2 EVERY 14 DAYS
     Route: 065
     Dates: start: 20151105, end: 20160218
  16. SUTENT [Suspect]
     Active Substance: SUNITINIB MALATE
     Indication: PANCREATIC NEUROENDOCRINE TUMOUR
     Dosage: 25 MILLIGRAM DAILY;
     Route: 065
     Dates: start: 20150919, end: 20151023
  17. OXYNORM [Concomitant]
     Active Substance: OXYCODONE HYDROCHLORIDE
     Dosage: UNK
     Route: 048
     Dates: start: 20160916, end: 20161004
  18. DUROGESIC [Concomitant]
     Active Substance: FENTANYL
     Indication: ABDOMINAL PAIN
     Dosage: UNK
     Route: 003
     Dates: start: 201510
  19. OXALIPLATIN. [Suspect]
     Active Substance: OXALIPLATIN
     Dosage: 75 MG/M2, CYCLIC, EVERY 14 DAYS
     Dates: start: 20160616, end: 20160729
  20. FLUOROURACIL. [Suspect]
     Active Substance: FLUOROURACIL
     Indication: PRODUCT USED FOR UNKNOWN INDICATION
     Dosage: 400 MG/M2, SINGLE
     Route: 065
     Dates: start: 20160914, end: 20160914
  21. SUTENT [Suspect]
     Active Substance: SUNITINIB MALATE
     Dosage: 37.5 MILLIGRAM DAILY; 37.5 MG, DAILY
     Route: 065
     Dates: start: 20150827, end: 20150831
  22. SOLUPRED /00016201/ [Concomitant]
     Active Substance: PREDNISOLONE
     Indication: ABDOMINAL PAIN
     Dosage: UNK
     Route: 048
     Dates: start: 20160920, end: 20160923
  23. DUROGESIC [Concomitant]
     Active Substance: FENTANYL
     Dosage: UNK
     Dates: start: 20160922, end: 20161004
  24. FLUOROURACIL. [Suspect]
     Active Substance: FLUOROURACIL
     Dosage: 2400 MG/M2, ONCE/SINGLE
     Route: 065
     Dates: start: 20160914, end: 20160914
  25. GEMCITABINE HYDROCHLORIDE. [Suspect]
     Active Substance: GEMCITABINE HYDROCHLORIDE
     Dosage: 500 MG/M2, CYCLIC, EVERY 14 DAYS
     Route: 065
     Dates: start: 20160616, end: 20160729
  26. INNOHEP [Concomitant]
     Active Substance: TINZAPARIN SODIUM
     Indication: PROPHYLAXIS
     Dosage: UNK
     Route: 058
     Dates: start: 20160915

REACTIONS (16)
  - Psychomotor skills impaired [Fatal]
  - Dysaesthesia [Fatal]
  - Hepatic pain [Fatal]
  - Psychomotor skills impaired [Fatal]
  - Hepatic pain [Fatal]
  - Neoplasm progression [Fatal]
  - Decreased appetite [Fatal]
  - Abdominal pain [Fatal]
  - Neutropenia [Fatal]
  - Tumour necrosis [Fatal]
  - Dyspnoea [Fatal]
  - Pain [Fatal]
  - Hypoaesthesia [Fatal]
  - Decreased appetite [Fatal]
  - Asthenia [Fatal]
  - General physical health deterioration [Fatal]

NARRATIVE: CASE EVENT DATE: 20150829
